FAERS Safety Report 24935104 (Version 1)
Quarter: 2025Q1

REPORT INFORMATION
  Report Type: Spontaneous
  Country: JP (occurrence: JP)
  Receive Date: 20250206
  Receipt Date: 20250206
  Transmission Date: 20250408
  Serious: Yes (Other)
  Sender: GLAXOSMITHKLINE
  Company Number: JP-GSKJP-JP2024JPN159727AA

PATIENT

DRUGS (4)
  1. DAPRODUSTAT [Suspect]
     Active Substance: DAPRODUSTAT
     Indication: Nephrogenic anaemia
     Route: 048
     Dates: start: 202411
  2. DAPRODUSTAT [Suspect]
     Active Substance: DAPRODUSTAT
     Dates: start: 20241120
  3. ENARODUSTAT [Concomitant]
     Active Substance: ENARODUSTAT
     Indication: Nephrogenic anaemia
  4. ENARODUSTAT [Concomitant]
     Active Substance: ENARODUSTAT
     Dosage: 4 MG, QD

REACTIONS (3)
  - Internal haemorrhage [Unknown]
  - Haemoglobin decreased [Recovered/Resolved]
  - Fall [Unknown]

NARRATIVE: CASE EVENT DATE: 20241118
